APPROVED DRUG PRODUCT: DILTIAZEM HYDROCHLORIDE
Active Ingredient: DILTIAZEM HYDROCHLORIDE
Strength: 300MG
Dosage Form/Route: CAPSULE, EXTENDED RELEASE;ORAL
Application: A203023 | Product #004
Applicant: SUN PHARMACEUTICAL INDUSTRIES LTD
Approved: Jun 8, 2017 | RLD: No | RS: No | Type: DISCN